FAERS Safety Report 13156230 (Version 1)
Quarter: 2017Q1

REPORT INFORMATION
  Report Type: Not Available
  Country: US (occurrence: US)
  Receive Date: 20170126
  Receipt Date: 20170126
  Transmission Date: 20170428
  Serious: Yes (Other)
  Sender: FDA-Public Use
  Company Number: US-IHEALTH-2017-US-000374

PATIENT
  Age: 63 Year
  Sex: Male
  Weight: 83.92 kg

DRUGS (2)
  1. AZO URINARY TRACT DEFENSE ANTIBACTERIAL PROTECTION [Suspect]
     Active Substance: METHENAMINE\SODIUM SALICYLATE
     Dosage: 2 TABLETS TWICE
     Route: 048
     Dates: start: 20170111, end: 20170112
  2. CEPHALEXIN. [Suspect]
     Active Substance: CEPHALEXIN
     Dosage: 500 MG
     Route: 048

REACTIONS (5)
  - Constipation [Recovering/Resolving]
  - Diarrhoea [Recovering/Resolving]
  - Haematuria [Unknown]
  - Urinary retention [Recovering/Resolving]
  - Abdominal pain upper [Recovering/Resolving]

NARRATIVE: CASE EVENT DATE: 20170112
